FAERS Safety Report 18485734 (Version 1)
Quarter: 2020Q4

REPORT INFORMATION
  Report Type: Spontaneous
  Country: US (occurrence: US)
  Receive Date: 20201110
  Receipt Date: 20201110
  Transmission Date: 20210114
  Serious: Yes (Disabling)
  Sender: FDA-Public Use
  Company Number: None

PATIENT
  Age: 74 Year
  Sex: Male
  Weight: 56.25 kg

DRUGS (4)
  1. FINASTERIDE 5MG FILM-COATED TABLETS [Suspect]
     Active Substance: FINASTERIDE
     Indication: NEPHROLITHIASIS
     Dosage: ?          QUANTITY:1 TABLET(S);?
     Route: 048
  2. LEVOTHYROXINE NA 25MCG TAB [Concomitant]
  3. LISINOPRIL 10MG TAB [Concomitant]
     Active Substance: LISINOPRIL
  4. VITAMINS D3 AND B12 [Concomitant]

REACTIONS (5)
  - Thinking abnormal [None]
  - Mental disorder [None]
  - Feeling abnormal [None]
  - Memory impairment [None]
  - Disturbance in attention [None]

NARRATIVE: CASE EVENT DATE: 20200101
